FAERS Safety Report 6460434-0 (Version None)
Quarter: 2009Q4

REPORT INFORMATION
  Report Type: 
  Country: None (occurrence: None)
  Receive Date: 20091130
  Receipt Date: 20091116
  Transmission Date: 20100525
  Serious: Yes (Other)
  Sender: FDA-Public Use
  Company Number: IL-ROCHE-669114

PATIENT
  Age: 5 Year
  Sex: Female

DRUGS (4)
  1. CLONAZEPAM [Suspect]
     Indication: EPILEPSY
     Route: 065
  2. PHENOBARBITAL [Suspect]
     Indication: EPILEPSY
     Route: 065
  3. VIGABATRIN [Suspect]
     Route: 065
  4. THIAMINE [Concomitant]
     Route: 030

REACTIONS (5)
  - KYPHOSCOLIOSIS [None]
  - MENTAL RETARDATION [None]
  - MYOCLONIC EPILEPSY [None]
  - PNEUMONIA ASPIRATION [None]
  - QUADRIPLEGIA [None]
